FAERS Safety Report 7134340-2 (Version None)
Quarter: 2010Q4

REPORT INFORMATION
  Report Type: 
  Country: None (occurrence: None)
  Receive Date: 20101203
  Receipt Date: 20101126
  Transmission Date: 20110411
  Serious: Yes (Other)
  Sender: FDA-Public Use
  Company Number: FR-PFIZER INC-2010158871

PATIENT
  Age: 80 Year
  Sex: Male

DRUGS (1)
  1. TAHOR [Suspect]
     Dosage: 40MG, UNK

REACTIONS (2)
  - HYPOGLYCAEMIA [None]
  - MALAISE [None]
